FAERS Safety Report 8475245-4 (Version None)
Quarter: 2012Q2

REPORT INFORMATION
  Report Type: 
  Country: None (occurrence: None)
  Receive Date: 20120628
  Receipt Date: 20120618
  Transmission Date: 20120825
  Serious: Yes (Hospitalization)
  Sender: FDA-Public Use
  Company Number: JP-TEVA-334774ISR

PATIENT
  Sex: Male
  Weight: 53.2 kg

DRUGS (13)
  1. ATARAX [Concomitant]
     Dates: start: 20120416
  2. FAMOTIDINE [Suspect]
     Indication: PROPHYLAXIS AGAINST GASTROINTESTINAL ULCER
     Dosage: 40 MILLIGRAM;
     Route: 048
     Dates: start: 20120411, end: 20120416
  3. REBAMIPIDE,TAB,100MG [Concomitant]
     Route: 048
     Dates: start: 20120416
  4. BETAMETHASONE [Concomitant]
     Dosage: 3 MILLIGRAM;
     Dates: start: 20120424, end: 20120427
  5. BETAMETHASONE [Concomitant]
     Dosage: 1 MILLIGRAM;
     Dates: start: 20120508, end: 20120508
  6. LYRICA [Suspect]
     Indication: ANALGESIC THERAPY
     Dosage: 50 MILLIGRAM;
     Route: 048
     Dates: start: 20120403, end: 20120412
  7. TALION [Concomitant]
     Dates: start: 20120416
  8. LOXONIN TABLETS,60MG [Suspect]
     Indication: ANALGESIC THERAPY
     Route: 048
     Dates: start: 20120403, end: 20120412
  9. BETAMETHASONE [Concomitant]
     Dosage: 1.5 MILLIGRAM;
     Dates: start: 20120501, end: 20120508
  10. PREDONINE,TAB,5MG [Concomitant]
     Indication: ANTIINFLAMMATORY THERAPY
     Dosage: 20 MILLIGRAM;
     Route: 048
     Dates: start: 20120411
  11. PREDONINE,TAB,5MG [Concomitant]
     Route: 048
     Dates: start: 20120416, end: 20120424
  12. REBAMIPIDE,TAB,100MG [Concomitant]
     Indication: PROPHYLAXIS AGAINST GASTROINTESTINAL ULCER
     Route: 048
     Dates: start: 20120403, end: 20120412
  13. BETAMETHASONE [Concomitant]
     Dosage: 2 MILLIGRAM;
     Dates: start: 20120427, end: 20120501

REACTIONS (2)
  - HEPATIC FUNCTION ABNORMAL [None]
  - ERYTHEMA MULTIFORME [None]
